FAERS Safety Report 23773308 (Version 2)
Quarter: 2024Q2

REPORT INFORMATION
  Report Type: Spontaneous
  Country: US (occurrence: US)
  Receive Date: 20240423
  Receipt Date: 20240516
  Transmission Date: 20240716
  Serious: No
  Sender: FDA-Public Use
  Company Number: US-MYLANLABS-2024M1033578

PATIENT
  Sex: Female
  Weight: 41.73 kg

DRUGS (1)
  1. TRETINOIN [Suspect]
     Active Substance: TRETINOIN
     Indication: Acne
     Dosage: 1 PEA SIZED AMOUNT ALL OVER FACE AND NECK AT NIGHT WHEN NEEDED, QD
     Route: 065
     Dates: start: 2022

REACTIONS (2)
  - Nasal congestion [Unknown]
  - Hypoaesthesia [Unknown]

NARRATIVE: CASE EVENT DATE: 20220101
